FAERS Safety Report 18349248 (Version 1)
Quarter: 2020Q4

REPORT INFORMATION
  Report Type: Spontaneous
  Country: CA (occurrence: CA)
  Receive Date: 20201006
  Receipt Date: 20201006
  Transmission Date: 20210114
  Serious: Yes (Other)
  Sender: FDA-Public Use
  Company Number: CA-ASTRAZENECA-2020SF05635

PATIENT
  Age: 60 Year
  Sex: Male
  Weight: 109 kg

DRUGS (6)
  1. PANTOLOC [Concomitant]
     Active Substance: PANTOPRAZOLE SODIUM
  2. IMATINIB. [Concomitant]
     Active Substance: IMATINIB MESYLATE
     Dates: end: 201803
  3. VENTOLIN [Concomitant]
     Active Substance: ALBUTEROL SULFATE
  4. GLEEVEC [Concomitant]
     Active Substance: IMATINIB MESYLATE
     Dates: start: 201503
  5. ASPIRIN. [Concomitant]
     Active Substance: ASPIRIN
     Dosage: 162.0MG ONCE/SINGLE ADMINISTRATION
  6. SYMBICORT [Suspect]
     Active Substance: BUDESONIDE\FORMOTEROL FUMARATE DIHYDRATE
     Indication: ASTHMA
     Dosage: 2 PUFFS ONCE DAILY (BUT PHYSICIAN HAS PRESCRIBED HIM 2 PUFFS TWICE DAILY)
     Route: 055

REACTIONS (10)
  - Transient ischaemic attack [Unknown]
  - Seizure [Unknown]
  - Gastrooesophageal reflux disease [Unknown]
  - Hypersensitivity [Unknown]
  - Sinusitis [Unknown]
  - Gastrointestinal stromal tumour [Unknown]
  - Rhinitis allergic [Unknown]
  - Dysphonia [Recovered/Resolved]
  - Diarrhoea [Unknown]
  - Device malfunction [Unknown]

NARRATIVE: CASE EVENT DATE: 20150107
